FAERS Safety Report 25520631 (Version 1)
Quarter: 2025Q3

REPORT INFORMATION
  Report Type: Report from Study
  Country: US (occurrence: US)
  Receive Date: 20250705
  Receipt Date: 20250705
  Transmission Date: 20251020
  Serious: Yes (Other)
  Sender: AMNEAL
  Company Number: US-AMNEAL PHARMACEUTICALS-2025-AMRX-02506

PATIENT
  Sex: Male
  Weight: 50.794 kg

DRUGS (1)
  1. FYLNETRA [Suspect]
     Active Substance: PEGFILGRASTIM-PBBK
     Indication: Product used for unknown indication
     Dosage: 6 MILLIGRAM, EVERY 3WK
     Route: 058

REACTIONS (3)
  - Malnutrition [Not Recovered/Not Resolved]
  - Weight decreased [Not Recovered/Not Resolved]
  - Food intolerance [Not Recovered/Not Resolved]
